FAERS Safety Report 13550421 (Version 1)
Quarter: 2017Q2

REPORT INFORMATION
  Report Type: Spontaneous
  Country: CA (occurrence: CA)
  Receive Date: 20170516
  Receipt Date: 20170516
  Transmission Date: 20170830
  Serious: No
  Sender: FDA-Public Use
  Company Number: CA-PERNIX THERAPEUTICS-2016PT000241

PATIENT

DRUGS (1)
  1. SILENOR [Suspect]
     Active Substance: DOXEPIN HYDROCHLORIDE
     Indication: SLEEP DISORDER
     Dosage: 3 MG, UNKNOWN
     Route: 048
     Dates: start: 20161103

REACTIONS (4)
  - Diarrhoea [Recovered/Resolved]
  - Nausea [Recovered/Resolved]
  - Decreased appetite [Recovered/Resolved]
  - Abdominal pain upper [Recovered/Resolved]

NARRATIVE: CASE EVENT DATE: 20161104
